FAERS Safety Report 5457341-9 (Version None)
Quarter: 2007Q3

REPORT INFORMATION
  Report Type: 
  Country: None (occurrence: None)
  Receive Date: 20070918
  Receipt Date: 20070302
  Transmission Date: 20080115
  Serious: No
  Sender: FDA-Public Use
  Company Number: US-ASTRAZENECA-2007UW03435

PATIENT
  Age: 60 Year
  Sex: Female
  Weight: 72.6 kg

DRUGS (15)
  1. SEROQUEL [Suspect]
     Indication: BIPOLAR I DISORDER
     Route: 048
     Dates: start: 20070216
  2. SEROQUEL [Suspect]
     Route: 048
     Dates: start: 20070216
  3. SEROQUEL [Suspect]
     Dosage: 5 DAYS A WEEK
     Route: 048
  4. SEROQUEL [Suspect]
     Dosage: 5 DAYS A WEEK
     Route: 048
  5. SEROQUEL [Suspect]
     Route: 048
  6. SEROQUEL [Suspect]
     Route: 048
  7. SEROQUEL [Suspect]
     Route: 048
  8. SEROQUEL [Suspect]
     Route: 048
  9. LITHIUM CARBONATE [Concomitant]
  10. KLONOPIN [Concomitant]
  11. ZOLOFT [Concomitant]
  12. PREVACID [Concomitant]
  13. PROVIGIL [Concomitant]
  14. LIPITOR [Concomitant]
  15. SYNTHROID [Concomitant]

REACTIONS (16)
  - ABDOMINAL PAIN [None]
  - ANOREXIA [None]
  - ANTIPSYCHOTIC DRUG LEVEL INCREASED [None]
  - ANXIETY [None]
  - APATHY [None]
  - DEPRESSED MOOD [None]
  - DISTURBANCE IN ATTENTION [None]
  - DIZZINESS [None]
  - DRUG INEFFECTIVE [None]
  - DRY MOUTH [None]
  - HYPERHIDROSIS [None]
  - INCORRECT DOSE ADMINISTERED [None]
  - MALAISE [None]
  - NAUSEA [None]
  - ORTHOSTATIC HYPOTENSION [None]
  - SOMNOLENCE [None]
